FAERS Safety Report 20981529 (Version 1)
Quarter: 2022Q2

REPORT INFORMATION
  Report Type: Spontaneous
  Country: FR (occurrence: FR)
  Receive Date: 20220620
  Receipt Date: 20220620
  Transmission Date: 20220721
  Serious: Yes (Hospitalization)
  Sender: FDA-Public Use
  Company Number: None

PATIENT
  Age: 71 Year
  Sex: Male
  Weight: 71 kg

DRUGS (6)
  1. PREDNISONE [Suspect]
     Active Substance: PREDNISONE
     Indication: Adenocarcinoma
     Dosage: 2 DOSAGE FORM, QD
     Route: 048
     Dates: start: 20220420, end: 20220514
  2. FLUCONAZOLE [Suspect]
     Active Substance: FLUCONAZOLE
     Indication: Osteonecrosis
     Dosage: 1 DOSAGE FORM, QD
     Route: 048
     Dates: start: 20220422, end: 20220514
  3. CLINDAMYCIN [Suspect]
     Active Substance: CLINDAMYCIN
     Indication: Osteonecrosis
     Dosage: 6 DOSAGE FORM, QD
     Route: 048
     Dates: start: 20220422, end: 20220514
  4. CIPROFLOXACIN [Suspect]
     Active Substance: CIPROFLOXACIN
     Indication: Osteonecrosis
     Dosage: 3 DOSAGE FORM, QD
     Route: 048
     Dates: start: 20220422, end: 20220514
  5. ZYTIGA [Suspect]
     Active Substance: ABIRATERONE ACETATE
     Indication: Adenocarcinoma
     Dosage: 2 DOSAGE FORM
     Route: 048
     Dates: start: 20220420, end: 20220514
  6. FENOFIBRATE [Concomitant]
     Active Substance: FENOFIBRATE
     Indication: Product used for unknown indication
     Dosage: UNK
     Route: 065

REACTIONS (1)
  - Rash maculo-papular [Recovered/Resolved]

NARRATIVE: CASE EVENT DATE: 20220514
